FAERS Safety Report 4755063-0 (Version None)
Quarter: 2005Q3

REPORT INFORMATION
  Report Type: 
  Country: None (occurrence: None)
  Receive Date: 20050829
  Receipt Date: 20050822
  Transmission Date: 20060218
  Serious: Yes (Death, Hospitalization)
  Sender: FDA-Public Use
  Company Number: 2005AC01233

PATIENT
  Age: 71 Year
  Sex: Male

DRUGS (2)
  1. IRESSA [Suspect]
     Indication: NON-SMALL CELL LUNG CANCER
  2. IRESSA [Suspect]
     Indication: LUNG ADENOCARCINOMA

REACTIONS (19)
  - ATRIAL FIBRILLATION [None]
  - BLOOD CALCIUM DECREASED [None]
  - BLOOD CREATININE INCREASED [None]
  - BLOOD MAGNESIUM DECREASED [None]
  - BLOOD POTASSIUM INCREASED [None]
  - BLOOD PRESSURE DECREASED [None]
  - BLOOD UREA INCREASED [None]
  - BUNDLE BRANCH BLOCK LEFT [None]
  - CYANOSIS [None]
  - DIARRHOEA [None]
  - DIZZINESS [None]
  - HEART RATE INCREASED [None]
  - HEPATIC CONGESTION [None]
  - LUNG NEOPLASM [None]
  - MYOCARDITIS [None]
  - NEPHROSCLEROSIS [None]
  - PULMONARY OEDEMA [None]
  - SEPSIS [None]
  - VENTRICULAR HYPERTROPHY [None]
